FAERS Safety Report 4953028-7 (Version None)
Quarter: 2006Q1

REPORT INFORMATION
  Report Type: 
  Country: None (occurrence: None)
  Receive Date: 20060324
  Receipt Date: 20060315
  Transmission Date: 20060701
  Serious: Yes (Other)
  Sender: FDA-Public Use
  Company Number: NL-GLAXOSMITHKLINE-B0416786A

PATIENT
  Age: 46 Year
  Sex: Male

DRUGS (7)
  1. SALMETEROL XINAFOATE [Suspect]
  2. DIPHANTOINE [Concomitant]
  3. FRISIUM [Concomitant]
  4. LAMICTAL [Concomitant]
  5. NORVASC [Concomitant]
  6. ZOCOR [Concomitant]
  7. ASCAL [Concomitant]

REACTIONS (1)
  - EPILEPSY [None]
